FAERS Safety Report 8444371-8 (Version None)
Quarter: 2012Q2

REPORT INFORMATION
  Report Type: 
  Country: None (occurrence: None)
  Receive Date: 20120618
  Receipt Date: 20120615
  Transmission Date: 20120825
  Serious: Yes (Hospitalization, Other)
  Sender: FDA-Public Use
  Company Number: US-PFIZER INC-2012132977

PATIENT
  Sex: Male
  Weight: 77.1 kg

DRUGS (23)
  1. BLINDED THERAPY [Suspect]
     Indication: COLORECTAL CANCER METASTATIC
     Dosage: DAY 1 EVERY 14 DAYS
     Route: 042
     Dates: start: 20120501, end: 20120501
  2. ATIVAN [Concomitant]
     Indication: NAUSEA
     Dosage: UNK
     Dates: start: 20120417
  3. AZOPT [Concomitant]
     Indication: GLAUCOMA
     Dosage: UNK
     Dates: start: 20111001
  4. IRINOTECAN HCL [Suspect]
     Indication: COLORECTAL CANCER METASTATIC
     Dosage: 180 MG/M2, 1 EVERY 14 DAYS
     Route: 042
     Dates: start: 20120501, end: 20120501
  5. FLUOROURACIL [Suspect]
     Indication: COLORECTAL CANCER METASTATIC
     Dosage: 400 MG/M2, BOLUS
     Route: 040
     Dates: start: 20120501, end: 20120503
  6. WARFARIN [Concomitant]
     Indication: ATRIAL FIBRILLATION
     Dosage: UNK
     Dates: start: 19930101
  7. MECLIZINE [Concomitant]
     Indication: NAUSEA
     Dosage: UNK
     Dates: start: 20110401
  8. FLAXSEED OIL [Concomitant]
     Indication: MEDICAL DIET
     Dosage: UNK
     Dates: start: 20120101
  9. MULTIVITAMIN [Concomitant]
     Indication: MEDICAL DIET
     Dosage: UNK
     Dates: start: 20110401
  10. BENADRYL [Concomitant]
     Indication: PROPHYLAXIS
     Dosage: UNK, 2X/WEEK
     Dates: start: 20120501
  11. LEUCOVORIN CALCIUM [Suspect]
     Indication: COLORECTAL CANCER METASTATIC
     Dosage: 400 MG/M2, DAY 1 EVERY 14 DAYS
     Route: 042
     Dates: start: 20120501, end: 20120501
  12. DOXYCYCLINE [Concomitant]
     Indication: PROPHYLAXIS
     Dosage: UNK
     Dates: start: 20120101
  13. EMLA [Concomitant]
     Indication: PAIN
     Dosage: UNK
     Dates: start: 20120419
  14. ATROPINE [Concomitant]
     Indication: PROPHYLAXIS
     Dosage: UNK, EVERY TWO WEEKS
     Route: 042
     Dates: start: 20120501
  15. SEPTANEST [Concomitant]
     Dosage: UNK
     Dates: start: 20111001
  16. LISINOPRIL [Concomitant]
     Indication: HYPERTENSION
     Dosage: UNK
     Dates: start: 20111001
  17. LUMIGAN [Concomitant]
     Indication: GLAUCOMA
     Dosage: UNK
     Dates: start: 20111001
  18. DECADRON [Concomitant]
     Dosage: UNK
     Dates: start: 20120501
  19. OMEPRAZOLE [Concomitant]
     Indication: GASTROOESOPHAGEAL REFLUX DISEASE
     Dosage: UNK
     Dates: start: 20110401
  20. COSOPT [Concomitant]
     Dosage: UNK
     Dates: start: 20120421
  21. ALOXI [Concomitant]
     Indication: PROPHYLAXIS
     Dosage: UNK, EVERY 2 WEEKS
     Dates: start: 20120501
  22. FLUOROURACIL [Suspect]
     Dosage: 2400 MG/M2, DAY 1 AND 2 EVERY 14 DAYS
     Route: 042
     Dates: start: 20120501, end: 20120503
  23. LOMOTIL [Concomitant]
     Indication: DIARRHOEA
     Dosage: UNK
     Dates: start: 20120417

REACTIONS (2)
  - RHABDOMYOLYSIS [None]
  - FALL [None]
